FAERS Safety Report 20341052 (Version 2)
Quarter: 2023Q2

REPORT INFORMATION
  Report Type: Spontaneous
  Country: US (occurrence: US)
  Receive Date: 20220117
  Receipt Date: 20230406
  Transmission Date: 20230722
  Serious: No
  Sender: FDA-Public Use
  Company Number: US-SA-SAC20220111000925

PATIENT
  Sex: Female
  Weight: 47.6 kg

DRUGS (9)
  1. DUPIXENT [Suspect]
     Active Substance: DUPILUMAB
     Indication: Dermatitis atopic
     Dosage: 300 MG, QOW
     Route: 058
     Dates: start: 20200306
  2. ADVIL MIGRAINE [Concomitant]
     Active Substance: IBUPROFEN
  3. BIOTIN [Concomitant]
     Active Substance: BIOTIN
  4. BENADRYL [Concomitant]
     Active Substance: DIPHENHYDRAMINE HYDROCHLORIDE
  5. XYZAL [Concomitant]
     Active Substance: LEVOCETIRIZINE DIHYDROCHLORIDE
  6. VITAMIN D3 [Concomitant]
     Active Substance: CHOLECALCIFEROL
  7. VITAMIN C [Concomitant]
     Active Substance: ASCORBIC ACID
  8. PROBIOTICS NOS [Concomitant]
     Active Substance: PROBIOTICS NOS
  9. MIDOL [ACETYLSALICYLIC ACID] [Concomitant]

REACTIONS (2)
  - Alopecia [Unknown]
  - Eye infection [Unknown]

NARRATIVE: CASE EVENT DATE: 20210101
